FAERS Safety Report 4290487-X (Version None)
Quarter: 2004Q1

REPORT INFORMATION
  Report Type: 
  Country: None (occurrence: None)
  Receive Date: 20040126
  Receipt Date: 20031001
  Transmission Date: 20041129
  Serious: No
  Sender: FDA-Public Use
  Company Number: USA030434029

PATIENT
  Age: 61 Year
  Sex: Female
  Weight: 59 kg

DRUGS (8)
  1. FORTEO [Suspect]
     Indication: BONE DISORDER
     Dosage: 20 UG/1 DAY
     Dates: start: 20030325, end: 20030828
  2. FORTEO [Suspect]
     Indication: HYPOPARATHYROIDISM
     Dosage: 20 UG/1 DAY
     Dates: start: 20030325, end: 20030828
  3. ALBUTEROL [Concomitant]
  4. SEREVENT [Concomitant]
  5. SINGULAIR [Concomitant]
  6. ADVAIR DISKUS 100/50 [Concomitant]
  7. CALCIUM [Concomitant]
  8. CORTISONE [Concomitant]

REACTIONS (8)
  - ASTHENIA [None]
  - DRUG EFFECT DECREASED [None]
  - DYSPNOEA [None]
  - MUSCLE CRAMP [None]
  - NAUSEA [None]
  - RASH [None]
  - VOMITING [None]
  - WOUND [None]
